FAERS Safety Report 25603162 (Version 6)
Quarter: 2025Q4

REPORT INFORMATION
  Report Type: Report from Study
  Country: CA (occurrence: CA)
  Receive Date: 20250724
  Receipt Date: 20251023
  Transmission Date: 20260117
  Serious: Yes (Other)
  Sender: BAUSCH AND LOMB
  Company Number: CA-BAUSCH-BH-2025-014467

PATIENT
  Age: 65 Year
  Sex: Female
  Weight: 68.04 kg

DRUGS (2)
  1. SILIQ [Suspect]
     Active Substance: BRODALUMAB
     Indication: Psoriasis
     Dosage: 210 MG / 1.5 ML, WEEKLY INDUCTION
     Route: 058
     Dates: start: 20250703, end: 202507
  2. SILIQ [Suspect]
     Active Substance: BRODALUMAB
     Dosage: 210 MG / 1.5 ML, Q2 WEEKS
     Route: 058
     Dates: start: 2025

REACTIONS (15)
  - Uveitis [Not Recovered/Not Resolved]
  - Erythema [Recovered/Resolved]
  - Dry skin [Recovering/Resolving]
  - Neck pain [Recovered/Resolved]
  - Gastrooesophageal reflux disease [Recovering/Resolving]
  - Throat tightness [Recovered/Resolved]
  - Abdominal pain upper [Recovering/Resolving]
  - Panic reaction [Recovering/Resolving]
  - Nervousness [Recovering/Resolving]
  - Anxiety [Not Recovered/Not Resolved]
  - Stress [Recovering/Resolving]
  - Fatigue [Recovering/Resolving]
  - Rash papular [Recovered/Resolved]
  - Arthralgia [Unknown]
  - Oropharyngeal pain [Recovered/Resolved]

NARRATIVE: CASE EVENT DATE: 20250101
